FAERS Safety Report 6855871-6 (Version None)
Quarter: 2010Q2

REPORT INFORMATION
  Report Type: 
  Country: None (occurrence: None)
  Receive Date: 20100629
  Receipt Date: 20100318
  Transmission Date: 20101027
  Serious: No
  Sender: FDA-Public Use
  Company Number: US-WYE-H14242910

PATIENT
  Age: 38 Year
  Sex: Female

DRUGS (6)
  1. PRISTIQ [Suspect]
     Indication: DEPRESSION
     Dosage: 50 MG 1X PER 1 DAY, ORAL
     Route: 048
     Dates: start: 20100201, end: 20100315
  2. XANAX [Concomitant]
  3. LORAZEPAM [Concomitant]
  4. AMBIEN [Concomitant]
  5. SEROQUEL [Concomitant]
  6. RISPERDAL [Concomitant]

REACTIONS (5)
  - DECREASED APPETITE [None]
  - HAEMATOCHEZIA [None]
  - NAUSEA [None]
  - VOMITING [None]
  - WEIGHT DECREASED [None]
